FAERS Safety Report 7288067-7 (Version None)
Quarter: 2011Q1

REPORT INFORMATION
  Report Type: 
  Country: None (occurrence: None)
  Receive Date: 20110211
  Receipt Date: 20110207
  Transmission Date: 20110831
  Serious: Yes (Death, Hospitalization, Other)
  Sender: FDA-Public Use
  Company Number: PHHY2011JP09981

PATIENT
  Age: 74 Year
  Sex: Male
  Weight: 55 kg

DRUGS (15)
  1. EXJADE [Suspect]
     Dosage: 750 MG, DAILY
     Route: 048
     Dates: start: 20090929, end: 20100125
  2. FLOMOX [Suspect]
     Dosage: 300 MG, DAILY
     Route: 048
     Dates: start: 20091201, end: 20100103
  3. MS REISHIPPU [Concomitant]
     Dosage: UNK
     Dates: start: 20090901, end: 20100126
  4. EXJADE [Suspect]
     Dosage: 500 MG, DAILY
     Route: 048
     Dates: start: 20100224, end: 20100309
  5. GENTACIN [Concomitant]
     Dosage: 20 G
     Dates: start: 20090818, end: 20090818
  6. KETOPROFEN [Concomitant]
     Dosage: UNK
     Dates: start: 20091124, end: 20091215
  7. EXJADE [Suspect]
     Dosage: 500 MG, DAILY
     Route: 048
     Dates: start: 20100622, end: 20101101
  8. ALFAROL [Concomitant]
     Dosage: 0.75 UG
     Route: 048
     Dates: start: 20090818, end: 20101014
  9. ALFAROL [Concomitant]
     Dosage: 0.75 UG
     Route: 048
  10. MAGNESIUM OXIDE [Concomitant]
     Indication: PROPHYLAXIS
     Dosage: 1.5 G
     Route: 048
     Dates: start: 20090811, end: 20101101
  11. EXJADE [Suspect]
     Dosage: 1000 MG, DAILY
     Route: 048
     Dates: start: 20100126, end: 20100223
  12. EXJADE [Suspect]
     Indication: MYELODYSPLASTIC SYNDROME
     Dosage: 1000 MG, DAILY
     Route: 048
     Dates: start: 20090721, end: 20090914
  13. FLOMOX [Suspect]
     Dosage: 300 MG, DAILY
     Route: 048
     Dates: start: 20090818, end: 20091012
  14. MAGNESIUM OXIDE [Concomitant]
     Dosage: 1.5 G
  15. FAMOTIDINE [Concomitant]
     Indication: PROPHYLAXIS
     Dosage: 40 MG
     Route: 048

REACTIONS (7)
  - HYPOPHAGIA [None]
  - CREATININE RENAL CLEARANCE INCREASED [None]
  - ILEUS [None]
  - NEOPLASM MALIGNANT [None]
  - RENAL IMPAIRMENT [None]
  - DECREASED APPETITE [None]
  - ABDOMINAL PAIN LOWER [None]
